FAERS Safety Report 9102538 (Version 1)
Quarter: 2013Q1

REPORT INFORMATION
  Report Type: Report from Study
  Country: TN (occurrence: TN)
  Receive Date: 20130219
  Receipt Date: 20130219
  Transmission Date: 20140127
  Serious: Yes (Death)
  Sender: FDA-Public Use
  Company Number: TN-SANOFI-AVENTIS-2013SA013561

PATIENT
  Age: 80 Year
  Sex: Male

DRUGS (9)
  1. PLAVIX [Suspect]
     Indication: ACUTE CORONARY SYNDROME
     Route: 048
     Dates: start: 20120620, end: 20130201
  2. ASPEGIC [Concomitant]
     Route: 048
     Dates: end: 20130201
  3. TAREG [Concomitant]
     Route: 048
     Dates: end: 20130201
  4. LESCOL [Concomitant]
     Route: 048
     Dates: end: 20130201
  5. NEBILET [Concomitant]
     Route: 048
     Dates: end: 20130201
  6. ALLOPURINOL [Concomitant]
     Route: 048
     Dates: end: 20130201
  7. DEPAKINE [Concomitant]
     Route: 048
     Dates: end: 20130201
  8. DIAFUSOR [Concomitant]
     Route: 003
     Dates: end: 20130201
  9. NOOTROPYL [Concomitant]
     Route: 048
     Dates: end: 20130201

REACTIONS (1)
  - Pneumonia aspiration [Fatal]
